FAERS Safety Report 4449654-4 (Version None)
Quarter: 2004Q3

REPORT INFORMATION
  Report Type: 
  Country: None (occurrence: None)
  Receive Date: 20040913
  Receipt Date: 20040913
  Transmission Date: 20050211
  Serious: Yes (Hospitalization)
  Sender: FDA-Public Use
  Company Number: None

PATIENT
  Age: 42 Year
  Sex: Male

DRUGS (1)
  1. TISSUE, CORNEA GRAFT [Suspect]

REACTIONS (4)
  - COMPLICATIONS OF TRANSPLANT SURGERY [None]
  - CORNEAL INFECTION [None]
  - POSTOPERATIVE INFECTION [None]
  - TRANSPLANT REJECTION [None]
